FAERS Safety Report 15761669 (Version 1)
Quarter: 2018Q4

REPORT INFORMATION
  Report Type: Spontaneous
  Country: DK (occurrence: DK)
  Receive Date: 20181226
  Receipt Date: 20181226
  Transmission Date: 20190205
  Serious: Yes (Life-Threatening)
  Sender: FDA-Public Use
  Company Number: PHHY2018DK194968

PATIENT
  Age: 76 Year
  Sex: Female

DRUGS (10)
  1. ANCOZAN COMP [Suspect]
     Active Substance: HYDROCHLOROTHIAZIDE\LOSARTAN POTASSIUM
     Indication: HYPERTENSION
     Dosage: 1 ?G/L, QD (STYRKE: 100+25 MG)
     Route: 048
     Dates: end: 201712
  2. CENTYL MITE MED KALIUMKLORID [Concomitant]
     Indication: HYPERTENSION
     Dosage: 1 ?G/L, QD (STYRKE: 1,25 + 573 MG)
     Route: 048
     Dates: start: 20181120
  3. SODIUM HYDROGEN CARBONATE [Concomitant]
     Active Substance: SODIUM BICARBONATE
     Indication: BLOOD SODIUM DECREASED
     Dosage: 500 MG, QD (STYRKE: 500 MG)
     Route: 048
     Dates: start: 20181001
  4. DERMOVAT [Concomitant]
     Active Substance: CLOBETASOL
     Indication: PSORIASIS
     Dosage: 3 ?G/L, QD (STYRKE: 0,5 MG/G. DOSIS: 1 P?SM?RING MORGEN, MIDDAG OG AFTEN)
     Route: 003
     Dates: start: 201711
  5. BENEPALI [Concomitant]
     Active Substance: ETANERCEPT
     Indication: PSORIASIS
     Dosage: 50 MG, QW (STYRKE: 50 MG)
     Route: 058
     Dates: start: 20170626
  6. LOCOID [Concomitant]
     Active Substance: HYDROCORTISONE BUTYRATE
     Indication: PSORIASIS
     Dosage: 1 ?G/L, QD (STYRKE: 0,1%. DOSIS: 1 P?SM?RING DAGLIG)
     Route: 003
     Dates: start: 2017
  7. ELTROXIN [Concomitant]
     Active Substance: LEVOTHYROXINE
     Indication: HYPOTHYROIDISM
     Dosage: 250 UG, QW (STYRKE: 50 ?G. DOSIS: 1 TABLET 5 AF UGENS DAGE)
     Route: 048
     Dates: start: 2016
  8. TOBREX [Concomitant]
     Active Substance: TOBRAMYCIN
     Indication: EYE INFECTION
     Dosage: 2 ?G/L, QD (STYRKE: 3 MG/ML)
     Route: 050
  9. KALEORID [Concomitant]
     Active Substance: POTASSIUM CHLORIDE
     Indication: MINERAL SUPPLEMENTATION
     Dosage: STYRKE: 750 MG. DOSIS: EFTER SKRIFTLIG VEJLEDNING.
     Route: 048
  10. ANCOZAN [Concomitant]
     Active Substance: LOSARTAN POTASSIUM
     Indication: HYPERTENSION
     Dosage: 100 MG, QD (STYRKE: 100 MG)
     Route: 048
     Dates: start: 201712

REACTIONS (1)
  - Basal cell carcinoma [Not Recovered/Not Resolved]
